FAERS Safety Report 16364142 (Version 2)
Quarter: 2019Q2

REPORT INFORMATION
  Report Type: Report from Study
  Country: GB (occurrence: GB)
  Receive Date: 20190528
  Receipt Date: 20190529
  Transmission Date: 20190711
  Serious: Yes (Other)
  Sender: FDA-Public Use
  Company Number: GB-SHIRE-GB201912280

PATIENT

DRUGS (2)
  1. VPRIV [Suspect]
     Active Substance: VELAGLUCERASE ALFA
     Dosage: 1600 INTERNATIONAL UNIT, 1X/2WKS
     Route: 042
     Dates: start: 20150903
  2. VPRIV [Suspect]
     Active Substance: VELAGLUCERASE ALFA
     Indication: GAUCHER^S DISEASE
     Dosage: 1600 INTERNATIONAL UNIT, 1X/2WKS
     Route: 042

REACTIONS (5)
  - Rectal haemorrhage [Unknown]
  - Diverticulitis [Unknown]
  - Infusion site haemorrhage [Recovered/Resolved]
  - Angiodysplasia [Unknown]
  - Infusion site erythema [Recovered/Resolved]

NARRATIVE: CASE EVENT DATE: 20190411
